FAERS Safety Report 12429641 (Version 1)
Quarter: 2016Q2

REPORT INFORMATION
  Report Type: Spontaneous
  Country: US (occurrence: US)
  Receive Date: 20160602
  Receipt Date: 20160602
  Transmission Date: 20160815
  Serious: No
  Sender: FDA-Public Use
  Company Number: US-CELGENEUS-USA-2016057140

PATIENT
  Age: 56 Year
  Sex: Female

DRUGS (1)
  1. REVLIMID [Suspect]
     Active Substance: LENALIDOMIDE
     Indication: NON-HODGKIN^S LYMPHOMA
     Dosage: 5 MILLIGRAM
     Route: 048
     Dates: start: 20160509

REACTIONS (4)
  - Diarrhoea [Recovered/Resolved]
  - Nausea [Recovered/Resolved]
  - Pruritus [Unknown]
  - Piloerection [Unknown]

NARRATIVE: CASE EVENT DATE: 20160510
